FAERS Safety Report 10192180 (Version 1)
Quarter: 2014Q2

REPORT INFORMATION
  Report Type: Spontaneous
  Country: US (occurrence: US)
  Receive Date: 20140523
  Receipt Date: 20140523
  Transmission Date: 20141212
  Serious: No
  Sender: FDA-Public Use
  Company Number: US-JNJFOC-20140511340

PATIENT
  Age: 37 Year
  Sex: Female

DRUGS (2)
  1. INVEGA SUSTENNA [Suspect]
     Indication: PRODUCT USED FOR UNKNOWN INDICATION
     Route: 030
     Dates: start: 201309
  2. LATUDA [Concomitant]
     Indication: PRODUCT USED FOR UNKNOWN INDICATION
     Route: 066
     Dates: end: 2014

REACTIONS (1)
  - Lactation disorder [Not Recovered/Not Resolved]
